FAERS Safety Report 5570032-9 (Version None)
Quarter: 2007Q4

REPORT INFORMATION
  Report Type: 
  Country: None (occurrence: None)
  Receive Date: 20071220
  Receipt Date: 20071211
  Transmission Date: 20080405
  Serious: Yes (Disabling, Other)
  Sender: FDA-Public Use
  Company Number: PHBS2007GB19529

PATIENT
  Age: 75 Year
  Sex: Male

DRUGS (3)
  1. STALEVO 100 [Suspect]
     Dosage: 100 MG, TID
     Route: 048
  2. STALEVO 100 [Suspect]
     Dosage: 150 MG, QD
     Route: 048
  3. STALEVO 100 [Suspect]
     Dosage: 100 MG, QD
     Route: 048

REACTIONS (4)
  - BACTERIAL FOOD POISONING [None]
  - DIARRHOEA [None]
  - FREEZING PHENOMENON [None]
  - INCONTINENCE [None]
